FAERS Safety Report 24890741 (Version 2)
Quarter: 2025Q1

REPORT INFORMATION
  Report Type: Spontaneous
  Country: ES (occurrence: ES)
  Receive Date: 20250127
  Receipt Date: 20250204
  Transmission Date: 20250409
  Serious: Yes (Other)
  Sender: NOVARTIS
  Company Number: ES-002147023-NVSC2025ES009997

PATIENT
  Age: 45 Year
  Sex: Female

DRUGS (3)
  1. COSENTYX [Suspect]
     Active Substance: SECUKINUMAB
     Indication: Psoriatic arthropathy
     Dosage: 300 MG, Q4W (WITH INITIAL LOADING DOSE)
     Route: 065
     Dates: start: 20240823, end: 20241115
  2. METHOTREXATE [Concomitant]
     Active Substance: METHOTREXATE
     Indication: Product used for unknown indication
     Dosage: 7.5 MG, QW (3 TABLETS)
     Route: 048
  3. FOLIC ACID [Concomitant]
     Active Substance: FOLIC ACID
     Indication: Product used for unknown indication
     Dosage: 2 DOSAGE FORM, QW
     Route: 065

REACTIONS (6)
  - Sarcoidosis [Unknown]
  - Erythema nodosum [Not Recovered/Not Resolved]
  - Hypermetabolism [Not Recovered/Not Resolved]
  - Aphthous ulcer [Recovered/Resolved]
  - Weight decreased [Not Recovered/Not Resolved]
  - Thyroid calcification [Not Recovered/Not Resolved]

NARRATIVE: CASE EVENT DATE: 20240101
